FAERS Safety Report 6422502-9 (Version None)
Quarter: 2009Q4

REPORT INFORMATION
  Report Type: 
  Country: None (occurrence: None)
  Receive Date: 20091102
  Receipt Date: 20091028
  Transmission Date: 20100525
  Serious: Yes (Life-Threatening, Other)
  Sender: FDA-Public Use
  Company Number: BE-ASTRAZENECA-2009SE20697

PATIENT
  Age: 19544 Day
  Sex: Male

DRUGS (3)
  1. DIPRIVAN [Suspect]
     Dosage: ONCE/SINGLE ADMINISTRATION
     Route: 042
  2. ACETAMINOPHEN [Concomitant]
  3. LEPOTIN [Concomitant]

REACTIONS (2)
  - BRAIN OEDEMA [None]
  - DELAYED RECOVERY FROM ANAESTHESIA [None]
